FAERS Safety Report 6129695-1 (Version None)
Quarter: 2009Q1

REPORT INFORMATION
  Report Type: 
  Country: None (occurrence: None)
  Receive Date: 20090324
  Receipt Date: 20090319
  Transmission Date: 20090719
  Serious: Yes (Death)
  Sender: FDA-Public Use
  Company Number: US-WYE-H07123708

PATIENT
  Age: 61 Year
  Sex: Male
  Weight: 62.9 kg

DRUGS (6)
  1. TORISEL [Suspect]
     Indication: RENAL CELL CARCINOMA
     Dosage: 10MG DAYS 1,8,15,AND 22
     Route: 042
     Dates: start: 20080401, end: 20080513
  2. TORISEL [Suspect]
     Dosage: UNKNOWN REDUCED DOSE
     Route: 042
     Dates: start: 20080527, end: 20080617
  3. ERGOCALCIFEROL/RETINOL [Concomitant]
  4. DIPHENHYDRAMINE HCL [Concomitant]
  5. BEVACIZUMAB [Suspect]
     Indication: RENAL CELL CARCINOMA
     Dosage: 5MG/KG OVER 30 - 90 MINUTES ON DAY 1 AND 15 OF A 28-DAY CYCLE; TOTAL DOSE GIVEN 1368MG
     Route: 042
     Dates: start: 20080401, end: 20080610
  6. ZOMETA [Concomitant]

REACTIONS (1)
  - DISEASE PROGRESSION [None]
